FAERS Safety Report 5494877-9 (Version None)
Quarter: 2007Q4

REPORT INFORMATION
  Report Type: 
  Country: None (occurrence: None)
  Receive Date: 20071024
  Receipt Date: 20071015
  Transmission Date: 20080405
  Serious: Yes (Hospitalization)
  Sender: FDA-Public Use
  Company Number: FR-ASTRAZENECA-2007CG01467

PATIENT
  Age: 65 Year
  Sex: Female

DRUGS (6)
  1. ARIMIDEX [Suspect]
     Indication: BREAST CANCER FEMALE
     Route: 048
     Dates: start: 20040101
  2. EZETROL [Concomitant]
     Dates: start: 20060101
  3. SEROPRAM [Concomitant]
  4. CARBOSYMAG [Concomitant]
  5. POLY-KARAYA [Concomitant]
  6. BIPERIDYS [Concomitant]
     Route: 048

REACTIONS (2)
  - DISTURBANCE IN ATTENTION [None]
  - PERSONALITY CHANGE DUE TO A GENERAL MEDICAL CONDITION [None]
